FAERS Safety Report 6259192-4 (Version None)
Quarter: 2009Q3

REPORT INFORMATION
  Report Type: 
  Country: None (occurrence: None)
  Receive Date: 20090707
  Receipt Date: 20090629
  Transmission Date: 20100115
  Serious: Yes (Hospitalization)
  Sender: FDA-Public Use
  Company Number: FR-AVENTIS-200912387FR

PATIENT
  Age: 51 Year
  Sex: Female

DRUGS (8)
  1. TAXOTERE [Suspect]
     Route: 042
     Dates: start: 20090515, end: 20090515
  2. TAXOTERE [Suspect]
     Route: 042
     Dates: start: 20090605, end: 20090605
  3. PRIMPERAN                          /00041901/ [Suspect]
     Route: 048
     Dates: start: 20090515, end: 20090517
  4. SOLUPRED                           /00016201/ [Suspect]
     Route: 048
     Dates: start: 20090514, end: 20090514
  5. SOLUPRED                           /00016201/ [Suspect]
     Route: 048
     Dates: start: 20090515, end: 20090515
  6. SOLUPRED                           /00016201/ [Suspect]
     Route: 048
     Dates: start: 20090605, end: 20090611
  7. PARACETAMOL [Suspect]
     Route: 048
  8. FLUOROURACIL [Concomitant]

REACTIONS (2)
  - OEDEMA PERIPHERAL [None]
  - VASCULAR PURPURA [None]
